FAERS Safety Report 6917848-1 (Version None)
Quarter: 2010Q3

REPORT INFORMATION
  Report Type: 
  Country: None (occurrence: None)
  Receive Date: 20100810
  Receipt Date: 20090728
  Transmission Date: 20110219
  Serious: No
  Sender: FDA-Public Use
  Company Number: US-PFIZER INC-2009215477

PATIENT
  Sex: Male
  Weight: 72 kg

DRUGS (9)
  1. TOVIAZ [Suspect]
     Indication: HYPERTONIC BLADDER
     Dosage: 4 MG, 2X/DAY
     Route: 048
     Dates: start: 20090508, end: 20090518
  2. ACTONEL [Concomitant]
     Dosage: UNK
     Route: 048
  3. AMIODARONE [Concomitant]
     Dosage: UNK
     Route: 048
  4. SAW PALMETTO [Concomitant]
     Dosage: UNK
     Route: 048
  5. CALCIUM [Concomitant]
     Dosage: UNK
     Route: 048
  6. ZINC [Concomitant]
     Dosage: UNK
     Route: 048
  7. VITAMIN B COMPLEX CAP [Concomitant]
     Dosage: UNK
     Route: 048
  8. ACETYLSALICYLIC ACID [Concomitant]
     Dosage: UNK
     Route: 048
  9. ASCORBIC ACID [Concomitant]
     Dosage: UNK
     Route: 048

REACTIONS (3)
  - DRY MOUTH [None]
  - POLLAKIURIA [None]
  - RASH MACULAR [None]
